FAERS Safety Report 5921370-9 (Version None)
Quarter: 2008Q4

REPORT INFORMATION
  Report Type: 
  Country: None (occurrence: None)
  Receive Date: 20081014
  Receipt Date: 20070806
  Transmission Date: 20090506
  Serious: Yes (Other)
  Sender: FDA-Public Use
  Company Number: 001#1#2007-00518

PATIENT
  Age: 67 Year
  Sex: Male

DRUGS (2)
  1. NEUPRO [Suspect]
     Indication: PARKINSON'S DISEASE
     Dosage: 8 MG/24H (8 MG/24H 1 IN 1 DAY (S)) TRANSDERMAL
     Route: 062
     Dates: start: 20070301, end: 20071201
  2. CLINDAMYCIN HCL [Suspect]
     Indication: SINUSITIS
     Dates: start: 20070709, end: 20070711

REACTIONS (6)
  - APPLICATION SITE ERYTHEMA [None]
  - APPLICATION SITE REACTION [None]
  - CONDITION AGGRAVATED [None]
  - DRUG INEFFECTIVE [None]
  - DRUG INTERACTION [None]
  - PARKINSON'S DISEASE [None]
